FAERS Safety Report 9696238 (Version 2)
Quarter: 2013Q4

REPORT INFORMATION
  Report Type: Spontaneous
  Country: GB (occurrence: None)
  Receive Date: 20131115
  Receipt Date: 20131121
  Transmission Date: 20140711
  Serious: Yes (Other)
  Sender: FDA-Public Use
  Company Number: AUR-APL-2013-09456

PATIENT
  Age: 35 Year
  Sex: Male
  Weight: 76.2 kg

DRUGS (3)
  1. OMEPRAZOLE [Suspect]
     Indication: REFLUX LARYNGITIS
     Route: 048
     Dates: start: 20110101, end: 20110708
  2. RANITIDINE [Suspect]
     Indication: REFLUX LARYNGITIS
     Route: 048
     Dates: start: 20120107, end: 20131005
  3. LANSOPRAZOLE [Suspect]
     Indication: REFLUX LARYNGITIS
     Route: 048
     Dates: start: 20110804, end: 20111206

REACTIONS (2)
  - Dry mouth [None]
  - Erectile dysfunction [None]
